FAERS Safety Report 19601502 (Version 3)
Quarter: 2022Q3

REPORT INFORMATION
  Report Type: Spontaneous
  Country: HU (occurrence: HU)
  Receive Date: 20210723
  Receipt Date: 20220628
  Transmission Date: 20221027
  Serious: Yes (Hospitalization)
  Sender: FDA-Public Use
  Company Number: HU-ASTRAZENECA-2021A514817

PATIENT
  Age: 14939 Day
  Sex: Female
  Weight: 80 kg

DRUGS (2)
  1. MONTELUKAST [Suspect]
     Active Substance: MONTELUKAST SODIUM
     Indication: Product used for unknown indication
     Dosage: 10 MG, QD
     Route: 065
     Dates: start: 20190101
  2. FOSTER [Suspect]
     Active Substance: BECLOMETHASONE\FORMOTEROL
     Indication: Product used for unknown indication
     Dosage: 2 DOSAGE FORM, Q12H (200/6)
     Route: 055
     Dates: start: 20190101

REACTIONS (3)
  - Asthma [Unknown]
  - Exposure during pregnancy [Unknown]
  - Acquired haemophilia [Unknown]

NARRATIVE: CASE EVENT DATE: 20210608
